FAERS Safety Report 7924833-X (Version None)
Quarter: 2011Q4

REPORT INFORMATION
  Report Type: 
  Country: None (occurrence: None)
  Receive Date: 20111118
  Receipt Date: 20111111
  Transmission Date: 20120403
  Serious: Yes (Life-Threatening, Hospitalization)
  Sender: FDA-Public Use
  Company Number: DE-BRISTOL-MYERS SQUIBB COMPANY-15213051

PATIENT
  Age: 79 Year
  Sex: Female

DRUGS (8)
  1. ABATACEPT [Suspect]
     Dosage: TIME POINT 2=16APR09 REST ON OCT2009 INTER ON 28JUL10 RESTAT ON 04OCT10 CUMULATIVE DOSE:5500MG
     Dates: start: 20081030
  2. BISOPROLOL FUMARATE [Concomitant]
     Dates: start: 20050101
  3. HYDROCHLOROTHIAZIDE [Concomitant]
     Dates: start: 20090901
  4. BONIVA [Concomitant]
     Dates: start: 20100201
  5. OMEPRAZOLE [Concomitant]
     Dates: start: 20051101
  6. NITRENDIPINE [Concomitant]
     Dates: start: 20100201
  7. PREDNISONE TAB [Concomitant]
     Dates: start: 20051101
  8. OLMESARTAN MEDOXOMIL [Concomitant]
     Dates: start: 20051101

REACTIONS (6)
  - DEHYDRATION [None]
  - SPINAL FRACTURE [None]
  - RENAL FAILURE ACUTE [None]
  - BACK PAIN [None]
  - HYSTERECTOMY [None]
  - GASTROENTERITIS [None]
